FAERS Safety Report 12675646 (Version 1)
Quarter: 2016Q3

REPORT INFORMATION
  Report Type: Spontaneous
  Country: US (occurrence: US)
  Receive Date: 20160823
  Receipt Date: 20160823
  Transmission Date: 20161109
  Serious: No
  Sender: FDA-Public Use
  Company Number: US-JAZZ-2016-US-006390

PATIENT
  Sex: Female

DRUGS (41)
  1. PROAIR HFA [Concomitant]
     Active Substance: ALBUTEROL SULFATE
  2. KLONOPIN [Concomitant]
     Active Substance: CLONAZEPAM
  3. DILANTIN [Concomitant]
     Active Substance: PHENYTOIN
  4. CYANOCOBALAMINE [Concomitant]
     Active Substance: CYANOCOBALAMIN
  5. PROMETHAZINE [Concomitant]
     Active Substance: PROMETHAZINE\PROMETHAZINE HYDROCHLORIDE
  6. TRADJENTA [Concomitant]
     Active Substance: LINAGLIPTIN
  7. LISINOPRIL. [Concomitant]
     Active Substance: LISINOPRIL
  8. ELMIRON [Concomitant]
     Active Substance: PENTOSAN POLYSULFATE SODIUM
  9. COZAAR [Concomitant]
     Active Substance: LOSARTAN POTASSIUM
  10. MULTIVITAMINS [Concomitant]
     Active Substance: VITAMINS
  11. NASONEX [Concomitant]
     Active Substance: MOMETASONE FUROATE
  12. PHENERGAN [Concomitant]
     Active Substance: PROMETHAZINE HYDROCHLORIDE
  13. XYREM [Suspect]
     Active Substance: SODIUM OXYBATE
     Dosage: 4.5 G, BID
     Route: 048
     Dates: start: 201402, end: 201404
  14. DEXILANT [Concomitant]
     Active Substance: DEXLANSOPRAZOLE
  15. CARAFATE [Concomitant]
     Active Substance: SUCRALFATE
  16. FISH OIL [Concomitant]
     Active Substance: FISH OIL
  17. REMERON [Concomitant]
     Active Substance: MIRTAZAPINE
  18. PRILOSEC [Concomitant]
     Active Substance: OMEPRAZOLE MAGNESIUM
  19. COREG [Concomitant]
     Active Substance: CARVEDILOL
  20. MIRAPEX [Concomitant]
     Active Substance: PRAMIPEXOLE DIHYDROCHLORIDE
  21. DOCUSATE SODIUM. [Concomitant]
     Active Substance: DOCUSATE SODIUM
  22. SPIRONOLACTONE. [Concomitant]
     Active Substance: SPIRONOLACTONE
  23. LOMOTIL [Concomitant]
     Active Substance: ATROPINE SULFATE\DIPHENOXYLATE HYDROCHLORIDE
  24. NUVIGIL [Concomitant]
     Active Substance: ARMODAFINIL
  25. SIMVASTATIN. [Concomitant]
     Active Substance: SIMVASTATIN
  26. ACTOS [Concomitant]
     Active Substance: PIOGLITAZONE HYDROCHLORIDE
  27. SALINE [Concomitant]
     Active Substance: SODIUM CHLORIDE
  28. VITAMIN D3 [Concomitant]
     Active Substance: CHOLECALCIFEROL
  29. XYREM [Suspect]
     Active Substance: SODIUM OXYBATE
     Dosage: 4.5 G, BID
     Route: 048
     Dates: start: 201511
  30. NORCO [Concomitant]
     Active Substance: ACETAMINOPHEN\HYDROCODONE BITARTRATE
  31. IRON [Concomitant]
     Active Substance: IRON
  32. SYNTHROID [Concomitant]
     Active Substance: LEVOTHYROXINE SODIUM
  33. NIASPAN [Concomitant]
     Active Substance: NIACIN
  34. ERGOCALCIFEROL. [Concomitant]
     Active Substance: ERGOCALCIFEROL
  35. FLEXERIL [Concomitant]
     Active Substance: CYCLOBENZAPRINE HYDROCHLORIDE
  36. XYREM [Suspect]
     Active Substance: SODIUM OXYBATE
     Indication: NARCOLEPSY
     Dosage: 3 G, BID
     Route: 048
     Dates: start: 201312, end: 201401
  37. XYREM [Suspect]
     Active Substance: SODIUM OXYBATE
     Indication: CATAPLEXY
     Dosage: 3.75 G, BID
     Route: 048
     Dates: start: 201401, end: 201402
  38. ADVAIR HFA [Concomitant]
     Active Substance: FLUTICASONE PROPIONATE\SALMETEROL XINAFOATE
  39. HYDROXYZINE HCL [Concomitant]
     Active Substance: HYDROXYZINE HYDROCHLORIDE
  40. FLONASE [Concomitant]
     Active Substance: FLUTICASONE PROPIONATE
  41. VITAMIN C [Concomitant]
     Active Substance: ASCORBIC ACID

REACTIONS (7)
  - Therapeutic response unexpected [Unknown]
  - Accident [Recovered/Resolved]
  - Blood urine present [Not Recovered/Not Resolved]
  - Skeletal injury [Unknown]
  - Joint injury [Unknown]
  - Limb injury [Unknown]
  - Pre-existing condition improved [Unknown]

NARRATIVE: CASE EVENT DATE: 2016
